FAERS Safety Report 17638505 (Version 1)
Quarter: 2020Q2

REPORT INFORMATION
  Report Type: Spontaneous
  Country: US (occurrence: US)
  Receive Date: 20200407
  Receipt Date: 20200407
  Transmission Date: 20200713
  Serious: No
  Sender: FDA-Public Use
  Company Number: None

PATIENT
  Age: 72 Year
  Sex: Female
  Weight: 47.25 kg

DRUGS (14)
  1. ASPIRIN 81MG, ORAL [Concomitant]
  2. MAGNESIUM 500MG, ORAL [Concomitant]
  3. HYDROCODONE-TYLENOL 5 - 325MG, ORAL [Concomitant]
  4. FLUCONAZOLE, 100MG, ORAL [Concomitant]
  5. NYSTATIN 500000 UNITS,ORAL [Concomitant]
  6. OMEPRAZOLE 40 MG, ORAL [Concomitant]
  7. INLYTA [Suspect]
     Active Substance: AXITINIB
     Indication: RENAL CANCER
     Route: 048
     Dates: start: 20200129
  8. SYMBICORT 160-4.5MG, INHALER [Concomitant]
  9. DOCUSATE 100MG, ORAL [Concomitant]
  10. CARVEDILOL 3.125MG, ORAL [Concomitant]
  11. TYLENOL 8 HOUR, 650MG, ORAL [Concomitant]
  12. KEYTRUDA 100MG/4ML, IV [Concomitant]
  13. FUROSEMIDE 20 MG, ORAL [Concomitant]
  14. POTASSIUM CHLORIDE ER 20 MEQ, ORAL [Concomitant]

REACTIONS (1)
  - Hospitalisation [None]

NARRATIVE: CASE EVENT DATE: 20200407
